FAERS Safety Report 9379189 (Version 1)
Quarter: 2013Q3

REPORT INFORMATION
  Report Type: Report from Study
  Country: US (occurrence: US)
  Receive Date: 20130702
  Receipt Date: 20130702
  Transmission Date: 20140515
  Serious: Yes (Hospitalization)
  Sender: FDA-Public Use
  Company Number: US-JNJFOC-20130617589

PATIENT
  Age: 13 Year
  Sex: Male
  Weight: 38.2 kg

DRUGS (4)
  1. REMICADE [Suspect]
     Indication: CROHN^S DISEASE
     Route: 042
     Dates: start: 20110124, end: 20120424
  2. HUMIRA [Concomitant]
     Route: 065
     Dates: start: 20120523
  3. OMEPRAZOLE [Concomitant]
     Route: 065
  4. BUDESONIDE [Concomitant]
     Route: 065

REACTIONS (1)
  - Crohn^s disease [Recovered/Resolved]
